FAERS Safety Report 4448883-3 (Version None)
Quarter: 2004Q3

REPORT INFORMATION
  Report Type: 
  Country: None (occurrence: None)
  Receive Date: 20040909
  Receipt Date: 20040827
  Transmission Date: 20050211
  Serious: Yes (Other)
  Sender: FDA-Public Use
  Company Number: 2004-0007429

PATIENT
  Age: 44 Year
  Sex: Male
  Weight: 123.5 kg

DRUGS (6)
  1. EMTRIVA [Suspect]
     Indication: HIV INFECTION
     Dosage: 200 MG, 1 IN 1 D, ORAL
     Route: 048
     Dates: start: 20040519, end: 20040715
  2. ZERIT XR [Suspect]
     Indication: HIV INFECTION
     Dosage: 100 MG, 1 IN 1 D, ORAL
     Route: 048
     Dates: start: 20040519, end: 20040715
  3. KALETRA [Suspect]
     Indication: HIV INFECTION
     Dosage: 1000 MG, 1 IN 1 D
     Dates: start: 20040519, end: 20040715
  4. DIFLUCAN [Concomitant]
  5. BACTRIM DS [Concomitant]
  6. ZITHROMAX [Concomitant]

REACTIONS (11)
  - ABDOMINAL DISTENSION [None]
  - ASCITES [None]
  - BLOOD CREATININE DECREASED [None]
  - BLOOD UREA DECREASED [None]
  - FLATULENCE [None]
  - HEPATIC CANCER METASTATIC [None]
  - HEPATIC CIRRHOSIS [None]
  - HEPATOSPLENOMEGALY [None]
  - SMALL CELL CARCINOMA [None]
  - VARICOSE VEIN [None]
  - WEIGHT INCREASED [None]
